FAERS Safety Report 23238281 (Version 1)
Quarter: 2023Q4

REPORT INFORMATION
  Report Type: Report from Study
  Country: NL (occurrence: NL)
  Receive Date: 20231129
  Receipt Date: 20231129
  Transmission Date: 20240110
  Serious: Yes (Hospitalization, Other)
  Sender: FDA-Public Use
  Company Number: NL-ABBVIE-5508914

PATIENT
  Sex: Female

DRUGS (12)
  1. ADALIMUMAB [Suspect]
     Active Substance: ADALIMUMAB\ISOPROPYL ALCOHOL
     Indication: Crohn^s disease
     Route: 058
     Dates: start: 201702
  2. METHOTREXATE [Suspect]
     Active Substance: METHOTREXATE
     Indication: Crohn^s disease
     Route: 065
     Dates: start: 201812, end: 201904
  3. THIOGUANINE ANHYDROUS [Concomitant]
     Active Substance: THIOGUANINE ANHYDROUS
     Indication: Crohn^s disease
     Dates: start: 201910
  4. BUDESONIDE [Concomitant]
     Active Substance: BUDESONIDE
     Indication: Gastrointestinal disorder
     Dates: start: 2015
  5. USTEKINUMAB [Suspect]
     Active Substance: USTEKINUMAB
     Indication: Crohn^s disease
     Route: 065
     Dates: start: 201811
  6. INFLIXIMAB [Suspect]
     Active Substance: INFLIXIMAB
     Indication: Crohn^s disease
     Route: 065
     Dates: start: 202101
  7. INFLIXIMAB [Suspect]
     Active Substance: INFLIXIMAB
     Indication: Crohn^s disease
     Route: 065
     Dates: start: 202109
  8. INFLIXIMAB [Suspect]
     Active Substance: INFLIXIMAB
     Indication: Crohn^s disease
     Route: 065
     Dates: start: 2017
  9. INFLIXIMAB [Suspect]
     Active Substance: INFLIXIMAB
     Indication: Crohn^s disease
     Route: 065
     Dates: start: 2021
  10. ZOLEDRONIC ACID [Concomitant]
     Active Substance: ZOLEDRONIC ACID
     Indication: Product used for unknown indication
  11. VEDOLIZUMAB [Suspect]
     Active Substance: VEDOLIZUMAB
     Indication: Crohn^s disease
     Route: 065
     Dates: start: 201803
  12. HYDROCORTISONE [Concomitant]
     Active Substance: HYDROCORTISONE
     Indication: Product used for unknown indication

REACTIONS (28)
  - Carpal tunnel syndrome [Recovered/Resolved]
  - Enteritis [Unknown]
  - Dyspnoea [Unknown]
  - Melaena [Unknown]
  - Colectomy [Unknown]
  - Gastrointestinal wall thickening [Unknown]
  - Ileal ulcer [Unknown]
  - Headache [Unknown]
  - Drug hypersensitivity [Unknown]
  - Anastomotic stenosis [Unknown]
  - Osteoporosis [Unknown]
  - Diverticulum intestinal [Unknown]
  - Carpal tunnel syndrome [Unknown]
  - Asthma [Unknown]
  - Muscle disorder [Unknown]
  - Vaginal fistula [Not Recovered/Not Resolved]
  - Diarrhoea [Unknown]
  - Colitis [Unknown]
  - Greater trochanteric pain syndrome [Unknown]
  - Anastomotic complication [Unknown]
  - Large intestinal ulcer [Unknown]
  - Osteoarthritis [Unknown]
  - Erythema [Unknown]
  - Ileal stenosis [Unknown]
  - Tenosynovitis [Unknown]
  - Pruritus [Unknown]
  - Gastrointestinal angiodysplasia [Unknown]
  - Adverse event [Unknown]

NARRATIVE: CASE EVENT DATE: 20170101
